FAERS Safety Report 14776274 (Version 2)
Quarter: 2018Q2

REPORT INFORMATION
  Report Type: Spontaneous
  Country: US (occurrence: US)
  Receive Date: 20180418
  Receipt Date: 20180608
  Transmission Date: 20180711
  Serious: No
  Sender: FDA-Public Use
  Company Number: US-NEUROCRINE BIOSCIENCES INC.-2018NBI00692

PATIENT
  Age: 63 Year
  Sex: Female

DRUGS (6)
  1. INGREZZA [Suspect]
     Active Substance: VALBENAZINE
     Indication: TARDIVE DYSKINESIA
     Route: 048
     Dates: start: 20180121, end: 20180127
  2. SEROQUEL [Concomitant]
     Active Substance: QUETIAPINE FUMARATE
     Indication: SCHIZOPHRENIA
  3. COGENTIN [Concomitant]
     Active Substance: BENZTROPINE MESYLATE
  4. VRAYLAR [Concomitant]
     Active Substance: CARIPRAZINE
     Indication: SCHIZOPHRENIA
  5. INGREZZA [Suspect]
     Active Substance: VALBENAZINE
     Route: 048
     Dates: start: 20180128, end: 20180131
  6. NAVANE [Concomitant]
     Active Substance: THIOTHIXENE

REACTIONS (2)
  - Sinusitis [Recovered/Resolved]
  - Dyspnoea [Recovered/Resolved]

NARRATIVE: CASE EVENT DATE: 20180128
